FAERS Safety Report 25389839 (Version 1)
Quarter: 2025Q2

REPORT INFORMATION
  Report Type: Spontaneous
  Country: CN (occurrence: CN)
  Receive Date: 20250603
  Receipt Date: 20250603
  Transmission Date: 20250717
  Serious: Yes (Other)
  Sender: BAYER HEALTHCARE PHARMACEUTICALS INC.
  Company Number: CN-BAYER-2025A073794

PATIENT
  Age: 61 Year
  Sex: Male
  Weight: 65 kg

DRUGS (2)
  1. ULTRAVIST [Suspect]
     Active Substance: IOPROMIDE
     Indication: Angiocardiogram
     Route: 013
     Dates: start: 20250529, end: 20250529
  2. ULTRAVIST [Suspect]
     Active Substance: IOPROMIDE
     Indication: Coronary artery disease

REACTIONS (7)
  - Anaphylactic shock [Recovering/Resolving]
  - Heart rate increased [None]
  - Blood pH decreased [None]
  - PCO2 increased [None]
  - PO2 increased [None]
  - Blood lactic acid increased [None]
  - Pruritus [Recovered/Resolved]

NARRATIVE: CASE EVENT DATE: 20250529
